FAERS Safety Report 4976354-4 (Version None)
Quarter: 2006Q2

REPORT INFORMATION
  Report Type: 
  Country: None (occurrence: None)
  Receive Date: 20060412
  Receipt Date: 20060327
  Transmission Date: 20061013
  Serious: No
  Sender: FDA-Public Use
  Company Number: US017233

PATIENT
  Age: 18 Month
  Sex: Male
  Weight: 10.91 kg

DRUGS (1)
  1. ACTIQ [Suspect]
     Dates: start: 20040425, end: 20040425

REACTIONS (1)
  - ACCIDENTAL DRUG INTAKE BY CHILD [None]
